FAERS Safety Report 11428985 (Version 1)
Quarter: 2015Q3

REPORT INFORMATION
  Report Type: Spontaneous
  Country: US (occurrence: US)
  Receive Date: 20150828
  Receipt Date: 20150828
  Transmission Date: 20151125
  Serious: Yes (Hospitalization, Other)
  Sender: FDA-Public Use
  Company Number: US-ROCHE-1190648

PATIENT
  Age: 58 Year
  Sex: Male

DRUGS (3)
  1. PEGASYS [Suspect]
     Active Substance: PEGINTERFERON ALFA-2A
     Indication: PRODUCT USED FOR UNKNOWN INDICATION
     Route: 065
  2. INCIVEK [Concomitant]
     Active Substance: TELAPREVIR
  3. RIBAVIRIN. [Concomitant]
     Active Substance: RIBAVIRIN
     Route: 065

REACTIONS (2)
  - Stevens-Johnson syndrome [Unknown]
  - Rash generalised [Unknown]
